FAERS Safety Report 6748033-4 (Version None)
Quarter: 2010Q2

REPORT INFORMATION
  Report Type: 
  Country: None (occurrence: None)
  Receive Date: 20100531
  Receipt Date: 20100517
  Transmission Date: 20101027
  Serious: Yes (Hospitalization)
  Sender: FDA-Public Use
  Company Number: NZ-MYLANLABS-2010S1008699

PATIENT
  Sex: Male

DRUGS (4)
  1. ATENOLOL [Suspect]
     Indication: STENT PLACEMENT
     Route: 048
     Dates: start: 20100508, end: 20100513
  2. ATENOLOL [Suspect]
     Route: 048
     Dates: start: 20100514, end: 20100516
  3. ATENOLOL [Suspect]
     Route: 048
     Dates: end: 20100506
  4. ATENOLOL [Concomitant]
     Dates: start: 20100506, end: 20100508

REACTIONS (5)
  - ANXIETY [None]
  - BRADYCARDIA [None]
  - CHEST PAIN [None]
  - MALAISE [None]
  - SLEEP DISORDER [None]
